FAERS Safety Report 7311024-9 (Version None)
Quarter: 2011Q1

REPORT INFORMATION
  Report Type: 
  Country: None (occurrence: None)
  Receive Date: 20110224
  Receipt Date: 20110216
  Transmission Date: 20110831
  Serious: Yes (Death, Hospitalization)
  Sender: FDA-Public Use
  Company Number: JP-ROCHE-707815

PATIENT
  Age: 60 Year
  Sex: Female
  Weight: 50 kg

DRUGS (7)
  1. IRINOTECAN HYDROCHLORIDE [Suspect]
     Indication: COLON CANCER METASTATIC
     Dosage: DOSAGE IS UNCERTAIN.
     Route: 041
  2. AVASTIN [Suspect]
     Indication: COLON CANCER METASTATIC
     Dosage: DOSAGE IS UNCERTAIN.
     Route: 041
  3. 5-FU [Concomitant]
     Dosage: FORM: INTRAVENOUS DRIP
     Route: 040
  4. LEVOFOLINATE [Concomitant]
     Dosage: LEVOFOLINATE CALCIUM(LEVOFOLINATE CALCIUM), DOSAGE IS UNCERTAIN.
     Route: 041
  5. LEVOFOLINATE [Concomitant]
     Route: 041
  6. ELPLAT [Concomitant]
     Dosage: NOTE: DOSAGE IS UNCERTAIN
     Route: 041
  7. 5-FU [Concomitant]
     Dosage: DOSAGE IS UNCERTAIN.
     Route: 040

REACTIONS (2)
  - DISEASE PROGRESSION [None]
  - LUNG DISORDER [None]
